FAERS Safety Report 21928020 (Version 1)
Quarter: 2023Q1

REPORT INFORMATION
  Report Type: Other
  Country: ZA (occurrence: None)
  Receive Date: 20230130
  Receipt Date: 20230130
  Transmission Date: 20230417
  Serious: Yes (Other)
  Sender: FDA-Public Use
  Company Number: ZA-ROCHE-3267229

PATIENT
  Sex: Male

DRUGS (2)
  1. OCREVUS [Suspect]
     Active Substance: OCRELIZUMAB
     Indication: Product used for unknown indication
     Route: 065
     Dates: start: 202207
  2. SOLU-MEDROL [Concomitant]
     Active Substance: METHYLPREDNISOLONE SODIUM SUCCINATE

REACTIONS (14)
  - Visual impairment [Unknown]
  - Demyelination [Unknown]
  - Multiple sclerosis [Unknown]
  - Eye movement disorder [Unknown]
  - Hyperreflexia [Unknown]
  - Muscular weakness [Unknown]
  - Muscle spasticity [Unknown]
  - Intention tremor [Unknown]
  - Postural tremor [Unknown]
  - Dysdiadochokinesis [Unknown]
  - Gait disturbance [Unknown]
  - Romberg test positive [Unknown]
  - Gait disturbance [Unknown]
  - Cognitive disorder [Unknown]
